FAERS Safety Report 5132195-9 (Version None)
Quarter: 2006Q4

REPORT INFORMATION
  Report Type: 
  Country: None (occurrence: None)
  Receive Date: 20061017
  Receipt Date: 20061005
  Transmission Date: 20070319
  Serious: Yes (Other)
  Sender: FDA-Public Use
  Company Number: HQWYE766309OCT06

PATIENT
  Age: 58 Year
  Sex: Female
  Weight: 63.56 kg

DRUGS (3)
  1. PRIMATENE MIST [Suspect]
     Indication: ASTHMA
     Dosage: 2 PUFFS A COUPLE OF TIMES, INHALATION
     Route: 055
     Dates: end: 20030101
  2. PRIMATENE (EPHEDRINE/GUAIFENESIN) [Concomitant]
  3. ALBUTEROL [Concomitant]

REACTIONS (2)
  - ASTHMA [None]
  - CONDITION AGGRAVATED [None]
